FAERS Safety Report 7126101-5 (Version None)
Quarter: 2010Q4

REPORT INFORMATION
  Report Type: 
  Country: None (occurrence: None)
  Receive Date: 20101129
  Receipt Date: 20101118
  Transmission Date: 20110411
  Serious: Yes (Disabling)
  Sender: FDA-Public Use
  Company Number: CN-ASTRAZENECA-2010SE54988

PATIENT
  Age: 51 Year
  Sex: Male

DRUGS (3)
  1. RHINOCORT [Suspect]
     Indication: NASAL POLYPECTOMY
     Dosage: 1 NASAL SPRAY FOR EACH NARIS BID, TOTAL 256 UG/DAY.
     Route: 045
  2. CLARITHROMYCIN [Concomitant]
     Route: 048
  3. NS [Concomitant]
     Route: 050

REACTIONS (2)
  - NASAL SEPTUM PERFORATION [None]
  - NASAL SEPTUM ULCERATION [None]
